FAERS Safety Report 7156445-2 (Version None)
Quarter: 2010Q4

REPORT INFORMATION
  Report Type: 
  Country: None (occurrence: None)
  Receive Date: 20101214
  Receipt Date: 20101205
  Transmission Date: 20110411
  Serious: Yes (Hospitalization)
  Sender: FDA-Public Use
  Company Number: US-ROCHE-747462

PATIENT
  Age: 62 Year
  Sex: Female

DRUGS (1)
  1. ACTEMRA [Suspect]
     Route: 065

REACTIONS (6)
  - BACTERIAL INFECTION [None]
  - ILLITERACY [None]
  - LUNG INFECTION [None]
  - PLEURAL EFFUSION [None]
  - PNEUMONIA [None]
  - VIRAL INFECTION [None]
